FAERS Safety Report 7174448-9 (Version None)
Quarter: 2010Q4

REPORT INFORMATION
  Report Type: 
  Country: None (occurrence: None)
  Receive Date: 20101219
  Receipt Date: 20100329
  Transmission Date: 20110411
  Serious: No
  Sender: FDA-Public Use
  Company Number: US-AMGEN-KDL402624

PATIENT

DRUGS (6)
  1. ENBREL [Suspect]
     Indication: PRODUCT USED FOR UNKNOWN INDICATION
     Dosage: 25 MG, 2 TIMES/WK
     Route: 058
  2. LEVOCETIRIZINE DIHYDROCHLORIDE [Concomitant]
     Dosage: 5 MG, UNK
  3. FLUTICASONE PROPIONATE [Concomitant]
     Dosage: .05 %, UNK
  4. DESOGESTREL AND ETHINYL ESTRADIOL [Concomitant]
     Dosage: UNK UNK, UNK
  5. KETOCONAZOLE [Concomitant]
     Dosage: 2 %, UNK
  6. ACETAMINOPHEN [Concomitant]
     Dosage: 325 MG, UNK

REACTIONS (2)
  - CONDITION AGGRAVATED [None]
  - DRUG INEFFECTIVE [None]
